FAERS Safety Report 22374655 (Version 1)
Quarter: 2023Q2

REPORT INFORMATION
  Report Type: Spontaneous
  Country: GB (occurrence: GB)
  Receive Date: 20230526
  Receipt Date: 20230526
  Transmission Date: 20230721
  Serious: Yes (Other)
  Sender: FDA-Public Use
  Company Number: GB-PFIZER INC-PV202300084723

PATIENT
  Age: 55 Year
  Sex: Male

DRUGS (1)
  1. DEXAMETHASONE SODIUM PHOSPHATE [Suspect]
     Active Substance: DEXAMETHASONE SODIUM PHOSPHATE
     Indication: Plasma cell myeloma
     Dosage: UNK
     Route: 065

REACTIONS (8)
  - Diabetes mellitus [Unknown]
  - Oedema [Unknown]
  - Neuropathy peripheral [Recovering/Resolving]
  - Mobility decreased [Recovering/Resolving]
  - Blood pressure abnormal [Unknown]
  - Weight increased [Unknown]
  - Fatigue [Unknown]
  - Mood altered [Unknown]
